FAERS Safety Report 6796110-4 (Version None)
Quarter: 2010Q2

REPORT INFORMATION
  Report Type: 
  Country: None (occurrence: None)
  Receive Date: 20100625
  Receipt Date: 20100615
  Transmission Date: 20101027
  Serious: Yes (Death)
  Sender: FDA-Public Use
  Company Number: CO-ROCHE-709302

PATIENT
  Sex: Male

DRUGS (3)
  1. XELODA [Suspect]
     Indication: GASTRIC CANCER
     Dosage: FREQUENCY: DAILY
     Route: 048
     Dates: start: 20100409, end: 20100523
  2. HERCEPTIN [Suspect]
     Indication: GASTRIC CANCER
     Route: 042
     Dates: start: 20100410, end: 20100523
  3. ACETAMINOPHEN [Concomitant]
     Indication: PAIN
     Dosage: FREQUENCY: AS NECESSARY
     Route: 048

REACTIONS (1)
  - DISEASE PROGRESSION [None]
